FAERS Safety Report 6107298-2 (Version None)
Quarter: 2009Q1

REPORT INFORMATION
  Report Type: 
  Country: None (occurrence: None)
  Receive Date: 20090305
  Receipt Date: 20090220
  Transmission Date: 20090719
  Serious: Yes (Death)
  Sender: FDA-Public Use
  Company Number: B0562325A

PATIENT
  Age: 43 Year
  Sex: Female

DRUGS (8)
  1. MELPHALAN (FORMULATION UNKNOWN) (GENERIC) (MEPHALAN) [Suspect]
     Indication: BONE MARROW TRANSPLANT
     Dates: start: 20071201
  2. FLUDARABINE PHOSPHATE [Suspect]
     Indication: BONE MARROW TRANSPLANT
     Dates: start: 20071201
  3. CLYCLOSPHOSPHAMIDE [Concomitant]
  4. CYCLOSPORINE [Concomitant]
  5. METHOTREXATE [Concomitant]
  6. MYCOPHENOLATE MOFETIL [Concomitant]
  7. RADIOTHERAPY [Suspect]
     Indication: DRUG USE FOR UNKNOWN INDICATION
     Dates: start: 20071001
  8. PREDNISOLONE [Suspect]
     Indication: DRUG USE FOR UNKNOWN INDICATION

REACTIONS (9)
  - CORD BLOOD TRANSPLANT THERAPY [None]
  - DISSEMINATED TUBERCULOSIS [None]
  - ENGRAFT FAILURE [None]
  - HYPOXIA [None]
  - PLATELET COUNT DECREASED [None]
  - PYREXIA [None]
  - RASH [None]
  - RESPIRATORY DISORDER [None]
  - WEIGHT INCREASED [None]
